FAERS Safety Report 14606235 (Version 1)
Quarter: 2018Q1

REPORT INFORMATION
  Report Type: Spontaneous
  Country: US (occurrence: US)
  Receive Date: 20180307
  Receipt Date: 20180307
  Transmission Date: 20180509
  Serious: Yes (Other)
  Sender: FDA-Public Use
  Company Number: US-ROCHE-2079242

PATIENT
  Age: 61 Year
  Sex: Male

DRUGS (1)
  1. XELODA [Suspect]
     Active Substance: CAPECITABINE
     Indication: OESOPHAGEAL CARCINOMA
     Dosage: TWICE A DAY 14 DAYS, THEN 7 DAYS
     Route: 048
     Dates: start: 20171028

REACTIONS (4)
  - Increased appetite [Unknown]
  - Off label use [Unknown]
  - Intentional product use issue [Unknown]
  - Weight increased [Unknown]

NARRATIVE: CASE EVENT DATE: 20180206
